FAERS Safety Report 23907782 (Version 1)
Quarter: 2024Q2

REPORT INFORMATION
  Report Type: Spontaneous
  Country: US (occurrence: US)
  Receive Date: 20240528
  Receipt Date: 20240528
  Transmission Date: 20240716
  Serious: No
  Sender: FDA-Public Use
  Company Number: US-ABBVIE-5772582

PATIENT
  Sex: Female

DRUGS (1)
  1. NORVIR [Suspect]
     Active Substance: RITONAVIR
     Indication: HIV infection
     Route: 048

REACTIONS (2)
  - Back pain [Unknown]
  - Back injury [Unknown]

NARRATIVE: CASE EVENT DATE: 20240519
